FAERS Safety Report 14721617 (Version 2)
Quarter: 2018Q2

REPORT INFORMATION
  Report Type: Spontaneous
  Country: US (occurrence: US)
  Receive Date: 20180405
  Receipt Date: 20180426
  Transmission Date: 20180711
  Serious: Yes (Hospitalization)
  Sender: FDA-Public Use
  Company Number: US-GLAXOSMITHKLINE-US2018056956

PATIENT
  Age: 80 Year
  Sex: Female

DRUGS (7)
  1. COREG [Suspect]
     Active Substance: CARVEDILOL
     Indication: HYPERTENSION
     Dosage: 3.125 MG, BID
     Route: 048
     Dates: start: 20180224
  2. PHOSLO [Concomitant]
     Active Substance: CALCIUM ACETATE
  3. HYDRALAZINE [Concomitant]
     Active Substance: HYDRALAZINE HYDROCHLORIDE
  4. OXYGEN. [Concomitant]
     Active Substance: OXYGEN
  5. SENSIPAR [Concomitant]
     Active Substance: CINACALCET HYDROCHLORIDE
  6. CARDIZEM [Concomitant]
     Active Substance: DILTIAZEM HYDROCHLORIDE
  7. REQUIP [Concomitant]
     Active Substance: ROPINIROLE HYDROCHLORIDE

REACTIONS (8)
  - Fall [Unknown]
  - Fatigue [Unknown]
  - Dyspnoea [Recovering/Resolving]
  - Mobility decreased [Unknown]
  - Abdominal discomfort [Unknown]
  - Condition aggravated [Unknown]
  - Abdominal pain upper [Unknown]
  - Somnolence [Not Recovered/Not Resolved]

NARRATIVE: CASE EVENT DATE: 20180331
